FAERS Safety Report 16088827 (Version 1)
Quarter: 2019Q1

REPORT INFORMATION
  Report Type: Spontaneous
  Country: US (occurrence: US)
  Receive Date: 20190319
  Receipt Date: 20190319
  Transmission Date: 20190418
  Serious: Yes (Hospitalization)
  Sender: FDA-Public Use
  Company Number: US-PTC THERAPEUTICS, INC.-US-2019PTC000457

PATIENT

DRUGS (1)
  1. EMFLAZA [Suspect]
     Active Substance: DEFLAZACORT
     Indication: OSTEOPOROSIS
     Dosage: 6 MG, QD
     Route: 048
     Dates: start: 20170721

REACTIONS (3)
  - Off label use [Unknown]
  - Dehydration [Unknown]
  - Viral infection [Unknown]
